FAERS Safety Report 24612817 (Version 1)
Quarter: 2024Q4

REPORT INFORMATION
  Report Type: Spontaneous
  Country: BR (occurrence: BR)
  Receive Date: 20241113
  Receipt Date: 20241113
  Transmission Date: 20250115
  Serious: Yes (Other)
  Sender: KYOWA
  Company Number: BR-KYOWAKIRIN-2024KK025554

PATIENT

DRUGS (2)
  1. CRYSVITA [Suspect]
     Active Substance: BUROSUMAB-TWZA
     Indication: Product used for unknown indication
     Dosage: UNK
     Route: 065
     Dates: start: 20241015
  2. CRYSVITA [Suspect]
     Active Substance: BUROSUMAB-TWZA
     Dosage: UNK
     Route: 065

REACTIONS (1)
  - Nephrocalcinosis [Unknown]

NARRATIVE: CASE EVENT DATE: 20241022
